FAERS Safety Report 8419236-8 (Version None)
Quarter: 2012Q2

REPORT INFORMATION
  Report Type: 
  Country: None (occurrence: None)
  Receive Date: 20120530
  Receipt Date: 20120515
  Transmission Date: 20120825
  Serious: Yes (Other)
  Sender: FDA-Public Use
  Company Number: DKLU1080730

PATIENT
  Age: 44 Year
  Sex: Male

DRUGS (6)
  1. VINCRISTINE [Suspect]
     Indication: RHABDOMYOSARCOMA
  2. COSMEGEN [Suspect]
     Indication: RHABDOMYOSARCOMA
  3. EPIRUBICIN [Suspect]
     Indication: RHABDOMYOSARCOMA
  4. ETOPOSIDE [Suspect]
     Indication: RHABDOMYOSARCOMA
  5. IRRADIATION (OTHER THERAPEUTIC RADIOPHARMACEUTICALS) [Concomitant]
  6. CARBOPLATIN [Suspect]
     Indication: RHABDOMYOSARCOMA

REACTIONS (2)
  - CACHEXIA [None]
  - INFECTION [None]
